FAERS Safety Report 6517516-4 (Version None)
Quarter: 2009Q4

REPORT INFORMATION
  Report Type: 
  Country: None (occurrence: None)
  Receive Date: 20091224
  Receipt Date: 20091217
  Transmission Date: 20100525
  Serious: Yes (Hospitalization)
  Sender: FDA-Public Use
  Company Number: GXKR2009GB13621

PATIENT
  Age: 13 Year
  Sex: Male

DRUGS (11)
  1. PREDNISOLONE [Suspect]
     Indication: IMMUNOSUPPRESSION
     Route: 065
  2. TACROLIMUS [Suspect]
     Indication: IMMUNOSUPPRESSION
     Dosage: 4-5 UG/L
     Route: 065
  3. CHEMOTHERAPEUTICS,OTHER [Concomitant]
     Route: 065
  4. DEXRAZOXANE [Concomitant]
     Route: 065
  5. CYCLOPHOSPHAMIDE [Concomitant]
     Route: 065
  6. VINCRISTINE [Concomitant]
     Route: 065
  7. DOXORUBICIN HCL [Concomitant]
     Route: 065
  8. CYTARABINE [Concomitant]
     Route: 065
  9. THIOGUANINE [Concomitant]
     Route: 065
  10. ANTIFUNGALS [Concomitant]
  11. METHOTREXATE [Concomitant]
     Route: 037

REACTIONS (3)
  - ABDOMINAL MASS [None]
  - ABDOMINAL PAIN [None]
  - BURKITT'S LEUKAEMIA [None]
